FAERS Safety Report 11242550 (Version 1)
Quarter: 2015Q3

REPORT INFORMATION
  Report Type: Spontaneous
  Country: US (occurrence: None)
  Receive Date: 20150701
  Receipt Date: 20150701
  Transmission Date: 20151125
  Serious: Yes (Hospitalization)
  Sender: FDA-Public Use
  Company Number: None

PATIENT
  Age: 65 Year
  Sex: Male
  Weight: 92.2 kg

DRUGS (2)
  1. TRAMADOL. [Suspect]
     Active Substance: TRAMADOL
     Indication: HYPOTENSION
     Route: 048
     Dates: start: 20141113, end: 20141113
  2. MORPHINE [Suspect]
     Active Substance: MORPHINE
     Indication: HYPOTENSION
     Route: 042
     Dates: start: 20141113, end: 20141113

REACTIONS (4)
  - Nephrolithiasis [None]
  - Dizziness [None]
  - Hydronephrosis [None]
  - Hypotension [None]

NARRATIVE: CASE EVENT DATE: 20141113
